FAERS Safety Report 5802276-2 (Version None)
Quarter: 2008Q3

REPORT INFORMATION
  Report Type: 
  Country: None (occurrence: None)
  Receive Date: 20080702
  Receipt Date: 20080618
  Transmission Date: 20090109
  Serious: Yes (Hospitalization)
  Sender: FDA-Public Use
  Company Number: 2008AL007637

PATIENT
  Age: 75 Year
  Sex: Female

DRUGS (9)
  1. HYDROXYZINE HCL [Suspect]
     Dosage: 20; X1; PO
     Route: 048
  2. DIAZEPAM [Suspect]
     Dosage: 50; X1; PO
     Route: 048
  3. TRAMADOL HCL [Suspect]
     Dosage: X1; PO
     Route: 048
  4. CETIRIZINE HCL [Suspect]
     Dosage: X1; PO
     Route: 048
  5. FLURAZEPAM [Concomitant]
  6. EUTHYROX [Concomitant]
  7. NOVALGINA [Concomitant]
  8. ZOLPIDEM [Concomitant]
  9. NALOXONE/OXYCODONE [Concomitant]

REACTIONS (5)
  - BRADYPNOEA [None]
  - CARDIAC ARREST [None]
  - ILEUS [None]
  - INCORRECT DOSE ADMINISTERED [None]
  - SUICIDE ATTEMPT [None]
